FAERS Safety Report 23463016 (Version 1)
Quarter: 2024Q1

REPORT INFORMATION
  Report Type: Spontaneous
  Country: FR (occurrence: FR)
  Receive Date: 20240131
  Receipt Date: 20240131
  Transmission Date: 20240410
  Serious: Yes (Hospitalization)
  Sender: FDA-Public Use
  Company Number: None

PATIENT
  Age: 69 Year
  Sex: Male
  Weight: 59 kg

DRUGS (1)
  1. PLUVICTO [Suspect]
     Active Substance: LUTETIUM LU-177 VIPIVOTIDE TETRAXETAN
     Indication: Prostate cancer
     Dosage: 7400 MBQ (STRENGTH: 1000 MBQ/ML)
     Route: 042
     Dates: start: 20240111, end: 20240111

REACTIONS (1)
  - Localised oedema [Recovering/Resolving]

NARRATIVE: CASE EVENT DATE: 20240112
